FAERS Safety Report 25134794 (Version 1)
Quarter: 2025Q1

REPORT INFORMATION
  Report Type: Spontaneous
  Country: US (occurrence: None)
  Receive Date: 20250328
  Receipt Date: 20250328
  Transmission Date: 20250409
  Serious: Yes (Hospitalization)
  Sender: FDA-CTU
  Company Number: None

PATIENT
  Age: 18 Year
  Sex: Male
  Weight: 68.5 kg

DRUGS (1)
  1. LEVOCARNITINE [Suspect]
     Active Substance: LEVOCARNITINE
     Dates: start: 20250306, end: 20250326

REACTIONS (1)
  - Staphylococcal infection [None]

NARRATIVE: CASE EVENT DATE: 20250326
